FAERS Safety Report 10667685 (Version 1)
Quarter: 2014Q4

REPORT INFORMATION
  Report Type: Spontaneous
  Country: DE (occurrence: None)
  Receive Date: 20141218
  Receipt Date: 20141218
  Transmission Date: 20150529
  Serious: Yes (Other)
  Sender: FDA-Public Use
  Company Number: DE-ZYDUS-006038

PATIENT
  Sex: Female

DRUGS (3)
  1. CLINDAMYCIN [Suspect]
     Active Substance: CLINDAMYCIN\CLINDAMYCIN PHOSPHATE
  2. QUININE (QUININE) [Suspect]
     Active Substance: QUININE
  3. PLASMOTRIM [Suspect]
     Active Substance: ARTESUNATE
     Dosage: 200MG RECTAL
     Route: 054

REACTIONS (3)
  - Electrocardiogram QT prolonged [None]
  - Haemolysis [None]
  - Acute kidney injury [None]
